FAERS Safety Report 17113539 (Version 1)
Quarter: 2019Q4

REPORT INFORMATION
  Report Type: Spontaneous
  Country: TR (occurrence: TR)
  Receive Date: 20191205
  Receipt Date: 20191205
  Transmission Date: 20200122
  Serious: Yes (Other)
  Sender: FDA-Public Use
  Company Number: TR-SUN PHARMACEUTICAL INDUSTRIES LTD-2019RR-229793

PATIENT
  Age: 59 Year
  Sex: Male

DRUGS (1)
  1. CAPECITABINE. [Suspect]
     Active Substance: CAPECITABINE
     Indication: COLON CANCER
     Dosage: 8 CYCLES, AS ADJUVANT CHEMOTHERAPY
     Route: 065

REACTIONS (1)
  - Colitis ulcerative [Recovering/Resolving]
